FAERS Safety Report 9414366 (Version 3)
Quarter: 2013Q4

REPORT INFORMATION
  Report Type: Spontaneous
  Country: US (occurrence: US)
  Receive Date: 20130723
  Receipt Date: 20131111
  Transmission Date: 20140711
  Serious: Yes (Other)
  Sender: FDA-Public Use
  Company Number: US-ASTELLAS-2013US007646

PATIENT
  Age: 57 Year
  Sex: Female

DRUGS (3)
  1. VESICARE [Suspect]
     Indication: HYPERTONIC BLADDER
     Dosage: 5 MG, UID/QD
     Route: 048
     Dates: start: 201306, end: 201307
  2. PRAVASTATIN [Suspect]
     Indication: BLOOD CHOLESTEROL
     Dosage: UNK
     Route: 065
  3. LASIX                              /00032601/ [Concomitant]
     Indication: PRODUCT USED FOR UNKNOWN INDICATION
     Dosage: UNK
     Route: 065

REACTIONS (4)
  - Gait disturbance [Recovered/Resolved]
  - Musculoskeletal stiffness [Recovered/Resolved]
  - Arthritis [Unknown]
  - Pollakiuria [Recovered/Resolved]
